FAERS Safety Report 6113083-8 (Version None)
Quarter: 2009Q1

REPORT INFORMATION
  Report Type: 
  Country: None (occurrence: None)
  Receive Date: 20090312
  Receipt Date: 20090304
  Transmission Date: 20090719
  Serious: Yes (Death, Other)
  Sender: FDA-Public Use
  Company Number: US-WYE-H08470009

PATIENT
  Age: 8 Year
  Sex: Female

DRUGS (2)
  1. ROBITUSSIN [Suspect]
     Indication: DRUG USE FOR UNKNOWN INDICATION
     Dosage: UNKNOWN
     Route: 065
  2. MOTRIN [Suspect]
     Indication: DRUG USE FOR UNKNOWN INDICATION
     Dosage: UNKNOWN
     Route: 065

REACTIONS (6)
  - BRAIN INJURY [None]
  - CEREBROVASCULAR ACCIDENT [None]
  - CIRCULATORY COLLAPSE [None]
  - HYPOXIA [None]
  - MYOCARDIAL INFARCTION [None]
  - OFF LABEL USE [None]
